FAERS Safety Report 8963933 (Version 1)
Quarter: 2012Q4

REPORT INFORMATION
  Report Type: 
  Country: US (occurrence: US)
  Receive Date: 20121214
  Receipt Date: 20121214
  Transmission Date: 20130627
  Serious: No
  Sender: FDA-Public Use
  Company Number: US-MYLANLABS-2012S1021372

PATIENT
  Age: 52 Year
  Sex: Male
  Weight: 90.72 kg

DRUGS (4)
  1. GABAPENTIN [Suspect]
     Indication: PRODUCT USED FOR UNKNOWN INDICATION
  2. LUNESTA [Suspect]
     Indication: INSOMNIA
     Route: 048
     Dates: start: 2007
  3. BENADRYL [Suspect]
     Indication: INSOMNIA
  4. MELATONIN [Suspect]
     Indication: INSOMNIA

REACTIONS (1)
  - Initial insomnia [Not Recovered/Not Resolved]
